FAERS Safety Report 5078268-0 (Version None)
Quarter: 2006Q3

REPORT INFORMATION
  Report Type: 
  Country: None (occurrence: None)
  Receive Date: 20060811
  Receipt Date: 20060802
  Transmission Date: 20061208
  Serious: Yes (Life-Threatening)
  Sender: FDA-Public Use
  Company Number: AU-ROCHE-458312

PATIENT
  Age: 82 Year
  Sex: Female
  Weight: 65 kg

DRUGS (12)
  1. CEFTRIAXONE SODIUM [Suspect]
     Indication: DRUG USE FOR UNKNOWN INDICATION
     Route: 042
     Dates: start: 20060506, end: 20060509
  2. PROPOFOL [Suspect]
     Indication: DRUG USE FOR UNKNOWN INDICATION
     Dosage: INTRAVENOUS INFUSION. 20 MG PER HOUR.
     Route: 042
     Dates: start: 20060506
  3. TRAMADOL HCL [Suspect]
     Indication: DRUG USE FOR UNKNOWN INDICATION
     Route: 042
     Dates: start: 20060507, end: 20060507
  4. METRONIDAZOLE [Suspect]
     Indication: DRUG USE FOR UNKNOWN INDICATION
     Route: 042
     Dates: start: 20060506, end: 20060509
  5. ACETAMINOPHEN [Suspect]
     Indication: DRUG USE FOR UNKNOWN INDICATION
     Route: 065
     Dates: start: 20060506, end: 20060509
  6. METOPROLOL TARTRATE [Suspect]
     Indication: DRUG USE FOR UNKNOWN INDICATION
     Route: 065
     Dates: end: 20060508
  7. ENOXAPARIN SODIUM [Suspect]
     Indication: DRUG USE FOR UNKNOWN INDICATION
     Route: 058
     Dates: start: 20060506, end: 20060508
  8. MORPHINE SULFATE [Concomitant]
  9. NORADRENALINE [Concomitant]
  10. NILSTAT [Concomitant]
     Dosage: 4 DOSE UNSPECIFIED. FORM REPORTED AS INHALATION.
     Route: 055
     Dates: start: 20060506
  11. MAXOLON [Concomitant]
     Route: 042
     Dates: start: 20060506
  12. ESOMEPRAZOLE MAGNESIUM [Concomitant]
     Route: 042

REACTIONS (2)
  - HEPATITIS [None]
  - HEPATITIS ACUTE [None]
